FAERS Safety Report 14354394 (Version 5)
Quarter: 2019Q3

REPORT INFORMATION
  Report Type: Report from Study
  Country: JP (occurrence: JP)
  Receive Date: 20180105
  Receipt Date: 20190909
  Transmission Date: 20191004
  Serious: Yes (Hospitalization, Other)
  Sender: FDA-Public Use
  Company Number: JP-ASTELLAS-2009JP000585

PATIENT
  Age: 21 Year
  Sex: Female
  Weight: 54 kg

DRUGS (134)
  1. PREDNISOLONE. [Suspect]
     Active Substance: PREDNISOLONE
     Route: 048
     Dates: start: 20071119, end: 20071210
  2. PREDNISOLONE. [Suspect]
     Active Substance: PREDNISOLONE
     Route: 048
     Dates: start: 20131003, end: 20141014
  3. PREDNISOLONE. [Suspect]
     Active Substance: PREDNISOLONE
     Route: 048
     Dates: start: 20141211, end: 20150412
  4. DECADRON [Suspect]
     Active Substance: DEXAMETHASONE
     Route: 048
     Dates: start: 20150702, end: 20150729
  5. DECADRON [Suspect]
     Active Substance: DEXAMETHASONE
     Route: 048
     Dates: start: 20150730, end: 20150826
  6. MUCOSTA [Concomitant]
     Active Substance: REBAMIPIDE
     Route: 048
     Dates: start: 20150730, end: 20150802
  7. LOXONIN [Concomitant]
     Active Substance: LOXOPROFEN SODIUM
     Route: 048
     Dates: start: 20160104, end: 20160107
  8. LOXONIN [Concomitant]
     Active Substance: LOXOPROFEN SODIUM
     Route: 048
     Dates: start: 20160112, end: 20160117
  9. FLOMOX [Concomitant]
     Indication: PHARYNGITIS
     Route: 048
     Dates: start: 20120315, end: 20120318
  10. DOGMATYL [Concomitant]
     Active Substance: SULPIRIDE
     Indication: GASTRITIS
     Route: 048
     Dates: start: 20091130, end: 20091228
  11. OLOPATADINE HYDROCHLORIDE. [Concomitant]
     Active Substance: OLOPATADINE HYDROCHLORIDE
     Indication: RASH
     Route: 048
     Dates: start: 20160111, end: 20160113
  12. DEQUALINIUM [Concomitant]
     Active Substance: DEQUALINIUM
     Indication: PHARYNGITIS
     Dosage: 0.25 MG, ONCE DAILY
     Route: 048
     Dates: start: 20160616, end: 20160629
  13. PREDNISOLONE. [Suspect]
     Active Substance: PREDNISOLONE
     Route: 048
     Dates: start: 20070910, end: 20071119
  14. PLAQUENIL                          /00072602/ [Suspect]
     Active Substance: HYDROXYCHLOROQUINE DIPHOSPHATE
     Indication: LUPUS NEPHRITIS
     Route: 048
     Dates: start: 20160602
  15. DECADRON [Suspect]
     Active Substance: DEXAMETHASONE
     Indication: LUPUS NEPHRITIS
     Route: 048
     Dates: start: 20150430, end: 20150610
  16. DECADRON [Suspect]
     Active Substance: DEXAMETHASONE
     Route: 048
     Dates: start: 20160512, end: 20160525
  17. DECADRON [Suspect]
     Active Substance: DEXAMETHASONE
     Dosage: 1.25 MG/DAY, UNKNOWN FREQ.
     Route: 048
     Dates: start: 20161125, end: 20170119
  18. ONEALFA [Concomitant]
     Active Substance: ALFACALCIDOL
     Indication: PROPHYLAXIS
     Dosage: 0.5 ?G, ONCE DAILY
     Route: 048
  19. MUCOSTA [Concomitant]
     Active Substance: REBAMIPIDE
     Dosage: 100 MG, AT PYREXIA
     Route: 048
     Dates: start: 20140220, end: 20140224
  20. MUCOSTA [Concomitant]
     Active Substance: REBAMIPIDE
     Route: 048
     Dates: start: 20160104, end: 20160123
  21. LOXONIN [Concomitant]
     Active Substance: LOXOPROFEN SODIUM
     Indication: NASOPHARYNGITIS
     Route: 048
     Dates: start: 20090501, end: 20090505
  22. FLOMOX [Concomitant]
     Route: 048
     Dates: start: 20120529, end: 20120602
  23. ROCEPHIN [Concomitant]
     Active Substance: CEFTRIAXONE SODIUM
     Indication: BACTERIAL INFECTION
     Route: 065
     Dates: start: 20090601, end: 20090601
  24. LOXOPROFEN [Concomitant]
     Active Substance: LOXOPROFEN
     Indication: LYMPHADENITIS
     Route: 048
     Dates: start: 20160223, end: 20160229
  25. CEFTRIAXONE SODIUM. [Concomitant]
     Active Substance: CEFTRIAXONE SODIUM
     Indication: LYMPHADENITIS
     Route: 042
     Dates: start: 20160225, end: 20160228
  26. PROTOPIC [Concomitant]
     Active Substance: TACROLIMUS
     Indication: ERYTHEMA
     Dosage: UNK UNK, UNKNOWN FREQ.
     Route: 050
     Dates: start: 20160426, end: 20160526
  27. PREDNISOLONE. [Suspect]
     Active Substance: PREDNISOLONE
     Indication: LUPUS NEPHRITIS
     Route: 048
  28. PREDNISOLONE. [Suspect]
     Active Substance: PREDNISOLONE
     Route: 048
     Dates: start: 20081201, end: 20091228
  29. PREDNISOLONE. [Suspect]
     Active Substance: PREDNISOLONE
     Route: 048
     Dates: start: 20141120, end: 20141210
  30. AUGMENTIN [Suspect]
     Active Substance: AMOXICILLIN\CLAVULANATE POTASSIUM
     Indication: PLEURISY
     Route: 048
     Dates: start: 20151229, end: 20160103
  31. MUCOSTA [Concomitant]
     Active Substance: REBAMIPIDE
     Indication: NASOPHARYNGITIS
     Route: 048
     Dates: start: 20080811, end: 20081027
  32. MUCOSTA [Concomitant]
     Active Substance: REBAMIPIDE
     Indication: GASTRITIS
     Route: 048
     Dates: start: 20120529, end: 20120602
  33. LOXONIN [Concomitant]
     Active Substance: LOXOPROFEN SODIUM
     Indication: PYREXIA
     Dosage: 60 MG, AT PYREXIA
     Route: 048
     Dates: start: 20140204, end: 20140209
  34. LOXONIN [Concomitant]
     Active Substance: LOXOPROFEN SODIUM
     Route: 048
     Dates: start: 20150129, end: 20150205
  35. LOXONIN [Concomitant]
     Active Substance: LOXOPROFEN SODIUM
     Route: 048
     Dates: start: 20150730, end: 20150802
  36. FLOMOX [Concomitant]
     Indication: SKIN MASS
     Route: 048
     Dates: start: 20111117, end: 20111120
  37. MUCODYNE [Concomitant]
     Active Substance: CARBOCYSTEINE
     Indication: PHARYNGITIS
     Dosage: UNK UNK, UNKNOWN FREQ.
     Route: 065
  38. EBASTEL [Concomitant]
     Active Substance: EBASTINE
     Indication: URTICARIA
     Route: 048
     Dates: start: 20110321, end: 20110324
  39. PL [Concomitant]
     Active Substance: ACETAMINOPHEN\CAFFEINE\PROMETHAZINE\SALICYLAMIDE
     Indication: NASOPHARYNGITIS
     Route: 048
     Dates: start: 20130110, end: 20130113
  40. FAROM [Concomitant]
     Active Substance: FAROPENEM SODIUM
     Indication: LYMPHADENOPATHY
     Route: 048
     Dates: start: 20160125, end: 20160201
  41. MIYA-BM [Concomitant]
     Active Substance: CLOSTRIDIUM BUTYRICUM SPORES STRAIN M-55
     Indication: FAECES SOFT
     Route: 048
     Dates: start: 20140710, end: 20140723
  42. FUNGIZONE [Concomitant]
     Active Substance: AMPHOTERICIN B
     Dosage: 3 ML/DAY, UNKNOWN FREQ.
     Route: 048
     Dates: start: 20170907, end: 20170922
  43. ADONA                              /00056903/ [Concomitant]
     Active Substance: CARBAZOCHROME SODIUM SULFONATE
     Indication: METRORRHAGIA
     Dosage: UNK UNK, UNKNOWN FREQ.
     Route: 065
  44. NAUZELIN [Concomitant]
     Active Substance: DOMPERIDONE
     Indication: NAUSEA
     Route: 048
     Dates: start: 20151029, end: 20151104
  45. MYSERA [Concomitant]
     Active Substance: MOMETASONE FUROATE
     Indication: ERYTHEMA
     Dosage: UNK UNK, UNKNOWN FREQ.
     Route: 050
     Dates: start: 20160426, end: 20160526
  46. PREDNISOLONE. [Suspect]
     Active Substance: PREDNISOLONE
     Route: 048
     Dates: start: 20091229, end: 20110526
  47. PREDNISOLONE. [Suspect]
     Active Substance: PREDNISOLONE
     Route: 048
     Dates: start: 20121123, end: 20130124
  48. PLAQUENIL                          /00072602/ [Suspect]
     Active Substance: HYDROXYCHLOROQUINE DIPHOSPHATE
     Indication: SYSTEMIC LUPUS ERYTHEMATOSUS
     Dosage: UNK UNK, UNKNOWN FREQ.
     Route: 065
  49. DECADRON [Suspect]
     Active Substance: DEXAMETHASONE
     Route: 048
     Dates: start: 20160324, end: 20160413
  50. DECADRON [Suspect]
     Active Substance: DEXAMETHASONE
     Route: 048
     Dates: start: 20160714, end: 20160914
  51. DECADRON [Suspect]
     Active Substance: DEXAMETHASONE
     Dosage: 0.75 MG/DAY, UNKNOWN FREQ.
     Route: 048
     Dates: start: 20170523, end: 20170713
  52. DECADRON [Suspect]
     Active Substance: DEXAMETHASONE
     Dosage: 0.5 MG/DAY, UNKNOWN FREQ.
     Route: 048
     Dates: start: 20170714
  53. MUCOSTA [Concomitant]
     Active Substance: REBAMIPIDE
     Indication: PYREXIA
     Route: 048
     Dates: start: 20091130, end: 20091228
  54. MUCOSTA [Concomitant]
     Active Substance: REBAMIPIDE
     Indication: NAUSEA
     Route: 048
     Dates: start: 20130214, end: 20130220
  55. MUCOSTA [Concomitant]
     Active Substance: REBAMIPIDE
     Dosage: 100 MG, AT PYREXIA
     Route: 048
     Dates: start: 20140313, end: 20140319
  56. TAKEPRON [Concomitant]
     Active Substance: LANSOPRAZOLE
     Indication: PROPHYLAXIS
     Route: 048
     Dates: start: 20091130, end: 20100125
  57. LOXONIN [Concomitant]
     Active Substance: LOXOPROFEN SODIUM
     Indication: PHARYNGITIS
     Route: 048
     Dates: start: 20120529, end: 20120602
  58. LOXONIN [Concomitant]
     Active Substance: LOXOPROFEN SODIUM
     Dosage: 60 MG, AT PYREXIA
     Route: 048
     Dates: start: 20140529, end: 20140601
  59. TAMIFLU [Concomitant]
     Active Substance: OSELTAMIVIR PHOSPHATE
     Indication: INFLUENZA
     Route: 048
     Dates: start: 20130214, end: 20130218
  60. CRAVIT [Concomitant]
     Active Substance: LEVOFLOXACIN
     Route: 048
     Dates: start: 20160225, end: 20160305
  61. FAROM [Concomitant]
     Active Substance: FAROPENEM SODIUM
     Indication: ARTHRALGIA
     Route: 048
     Dates: start: 20140828, end: 20140903
  62. MIYA-BM [Concomitant]
     Active Substance: CLOSTRIDIUM BUTYRICUM SPORES STRAIN M-55
     Route: 048
     Dates: start: 20160616, end: 20160629
  63. PREDONINE [Concomitant]
     Active Substance: PREDNISOLONE
     Route: 048
     Dates: start: 20141120, end: 20150412
  64. FUNGIZONE [Concomitant]
     Active Substance: AMPHOTERICIN B
     Dosage: UNK UNK, UNKNOWN FREQ.
     Route: 065
  65. GENTACIN [Concomitant]
     Active Substance: GENTAMICIN SULFATE
     Indication: RASH
     Dosage: UNK UNK, UNKNOWN FREQ.
     Route: 050
     Dates: start: 20160204, end: 20160218
  66. LEVOFLOXACIN. [Concomitant]
     Active Substance: LEVOFLOXACIN
     Indication: LYMPHADENOPATHY
     Route: 048
     Dates: start: 20160310, end: 20160316
  67. PREDNISOLONE. [Suspect]
     Active Substance: PREDNISOLONE
     Route: 048
     Dates: start: 20071210, end: 20080922
  68. PREDNISOLONE. [Suspect]
     Active Substance: PREDNISOLONE
     Route: 048
     Dates: start: 20130125, end: 20131002
  69. GASTER [Concomitant]
     Active Substance: FAMOTIDINE
     Route: 048
     Dates: start: 20080811, end: 20081027
  70. GASTER [Concomitant]
     Active Substance: FAMOTIDINE
     Route: 048
     Dates: start: 20091005, end: 20091103
  71. CALCIUM LACTATE [Concomitant]
     Active Substance: CALCIUM LACTATE
     Indication: PROPHYLAXIS
     Route: 048
     Dates: end: 20110915
  72. MUCOSTA [Concomitant]
     Active Substance: REBAMIPIDE
     Indication: UPPER RESPIRATORY TRACT INFLAMMATION
     Route: 048
     Dates: start: 20071119, end: 20080107
  73. MUCOSTA [Concomitant]
     Active Substance: REBAMIPIDE
     Indication: INFLUENZA
     Route: 048
     Dates: start: 20090501, end: 20090505
  74. MUCOSTA [Concomitant]
     Active Substance: REBAMIPIDE
     Dosage: 100 MG, AT PYREXIA
     Route: 048
     Dates: start: 20140529, end: 20140601
  75. TAKEPRON [Concomitant]
     Active Substance: LANSOPRAZOLE
     Indication: GASTRITIS
     Route: 048
     Dates: start: 20090323, end: 20090420
  76. LOXONIN [Concomitant]
     Active Substance: LOXOPROFEN SODIUM
     Indication: PLEURISY
     Dosage: 60 MG, AT PYREXIA
     Route: 048
     Dates: start: 20140313, end: 20140319
  77. CRAVIT [Concomitant]
     Active Substance: LEVOFLOXACIN
     Indication: LYMPHADENITIS
     Route: 048
     Dates: start: 20150129, end: 20150202
  78. FAROM [Concomitant]
     Active Substance: FAROPENEM SODIUM
     Indication: UPPER RESPIRATORY TRACT INFLAMMATION
     Route: 048
     Dates: start: 20140529, end: 20140601
  79. FAROM [Concomitant]
     Active Substance: FAROPENEM SODIUM
     Route: 048
     Dates: start: 20160616, end: 20160619
  80. FERROMIA [Concomitant]
     Active Substance: SODIUM FERROUS CITRATE
     Indication: ANAEMIA
     Route: 048
     Dates: start: 20150108, end: 20150430
  81. TRANSAMIN [Concomitant]
     Active Substance: TRANEXAMIC ACID
     Indication: PHARYNGITIS
     Dosage: UNK UNK, UNKNOWN FREQ.
     Route: 065
  82. RESTAMIN A KOWA [Concomitant]
     Indication: RASH
     Dosage: UNK UNK, UNKNOWN FREQ.
     Route: 050
     Dates: start: 20160112, end: 20160218
  83. REBAMIDE [Concomitant]
     Indication: LYMPHADENITIS
     Route: 048
     Dates: start: 20160226, end: 20160301
  84. PREDNISOLONE. [Suspect]
     Active Substance: PREDNISOLONE
     Route: 048
     Dates: start: 20120928, end: 20121025
  85. PREDNISOLONE. [Suspect]
     Active Substance: PREDNISOLONE
     Route: 048
     Dates: start: 20121026, end: 20121122
  86. DECADRON [Suspect]
     Active Substance: DEXAMETHASONE
     Route: 048
     Dates: start: 20150827, end: 20160323
  87. DECADRON [Suspect]
     Active Substance: DEXAMETHASONE
     Route: 048
     Dates: start: 20160526, end: 20160629
  88. DECADRON [Suspect]
     Active Substance: DEXAMETHASONE
     Dosage: 2.0 MG, ONCE DAILY
     Route: 048
     Dates: start: 20160630, end: 20160713
  89. MUCOSTA [Concomitant]
     Active Substance: REBAMIPIDE
     Indication: PHARYNGITIS
     Route: 048
     Dates: start: 20090323, end: 20090429
  90. PRIMPERAN [Concomitant]
     Active Substance: METOCLOPRAMIDE HYDROCHLORIDE
     Indication: NAUSEA
     Route: 048
     Dates: start: 20081122, end: 20081125
  91. FAROM [Concomitant]
     Active Substance: FAROPENEM SODIUM
     Indication: PHARYNGITIS
     Route: 048
     Dates: start: 20160317, end: 20160323
  92. FAROM [Concomitant]
     Active Substance: FAROPENEM SODIUM
     Dosage: 600 MG/DAY, UNKNOWN FREQ.
     Route: 048
     Dates: start: 20161013, end: 20161019
  93. PREDONINE [Concomitant]
     Active Substance: PREDNISOLONE
     Route: 048
     Dates: start: 20150413, end: 20150429
  94. FUNGIZONE [Concomitant]
     Active Substance: AMPHOTERICIN B
     Dosage: 3 ML/DAY, UNKNOWN FREQ.
     Route: 048
     Dates: start: 20161027, end: 20161110
  95. CELECOX [Concomitant]
     Active Substance: CELECOXIB
     Indication: MYALGIA
  96. LOCOID [Concomitant]
     Active Substance: HYDROCORTISONE BUTYRATE
     Indication: RASH
     Dosage: UNK UNK, UNKNOWN FREQ.
     Route: 050
     Dates: start: 20160114, end: 20160218
  97. TALION                             /01587402/ [Concomitant]
     Active Substance: BEPOTASTINE BESYLATE
     Indication: RASH
     Route: 048
     Dates: start: 20160118, end: 20160124
  98. PREDNISOLONE. [Suspect]
     Active Substance: PREDNISOLONE
     Route: 048
     Dates: start: 20080922, end: 20081201
  99. PREDNISOLONE. [Suspect]
     Active Substance: PREDNISOLONE
     Route: 048
     Dates: start: 20110527, end: 20120815
  100. PREDNISOLONE. [Suspect]
     Active Substance: PREDNISOLONE
     Route: 048
     Dates: start: 20120816, end: 20120913
  101. PREDNISOLONE. [Suspect]
     Active Substance: PREDNISOLONE
     Route: 048
     Dates: start: 20120914, end: 20120927
  102. DECADRON [Suspect]
     Active Substance: DEXAMETHASONE
     Dosage: 2.0 MG, ONCE DAILY
     Route: 048
     Dates: start: 20160414, end: 20160511
  103. DECADRON [Suspect]
     Active Substance: DEXAMETHASONE
     Route: 048
     Dates: start: 20160915, end: 20161124
  104. DECADRON [Suspect]
     Active Substance: DEXAMETHASONE
     Dosage: 1 MG/DAY, UNKNOWN FREQ.
     Route: 048
     Dates: start: 20170120, end: 20170522
  105. MUCOSTA [Concomitant]
     Active Substance: REBAMIPIDE
     Indication: PROPHYLAXIS
     Route: 048
     Dates: start: 20130110, end: 20130113
  106. MUCOSTA [Concomitant]
     Active Substance: REBAMIPIDE
     Route: 048
     Dates: start: 20151029, end: 20151111
  107. LAC-B [Concomitant]
     Active Substance: BIFIDOBACTERIUM SPP.
     Indication: NAUSEA
     Route: 048
     Dates: start: 20081122, end: 20081125
  108. LOXONIN [Concomitant]
     Active Substance: LOXOPROFEN SODIUM
     Indication: UPPER RESPIRATORY TRACT INFLAMMATION
     Dosage: 60 MG, AT PYREXIA
     Route: 048
     Dates: start: 20140220, end: 20140224
  109. FLOMOX [Concomitant]
     Indication: BACTERIAL INFECTION
     Route: 048
     Dates: start: 20090601, end: 20090606
  110. MUCODYNE [Concomitant]
     Active Substance: CARBOCYSTEINE
     Indication: BRONCHITIS
     Route: 048
     Dates: start: 20110303, end: 20110309
  111. ANTEBATE [Concomitant]
     Active Substance: BETAMETHASONE DIPROPIONATE
     Indication: RASH
     Dosage: UNK UNK, UNKNOWN FREQ.
     Route: 050
     Dates: start: 20160114, end: 20160218
  112. INAVIR                             /00587301/ [Concomitant]
     Indication: INFLUENZA
     Route: 055
     Dates: start: 20130206, end: 20130206
  113. CRAVIT [Concomitant]
     Active Substance: LEVOFLOXACIN
     Indication: PYREXIA
     Route: 048
     Dates: start: 20140204, end: 20140209
  114. CRAVIT [Concomitant]
     Active Substance: LEVOFLOXACIN
     Indication: PHARYNGITIS
     Route: 048
     Dates: start: 20140220, end: 20140224
  115. CRAVIT [Concomitant]
     Active Substance: LEVOFLOXACIN
     Route: 048
     Dates: start: 20150730, end: 20150805
  116. FAROM [Concomitant]
     Active Substance: FAROPENEM SODIUM
     Indication: PYREXIA
     Route: 048
     Dates: start: 20140313, end: 20140319
  117. FAROM [Concomitant]
     Active Substance: FAROPENEM SODIUM
     Indication: NECK PAIN
     Route: 048
     Dates: start: 20140731, end: 20140806
  118. KLARICID                           /00984601/ [Concomitant]
     Active Substance: CLARITHROMYCIN
     Indication: PYREXIA
     Route: 048
     Dates: start: 20140313, end: 20140319
  119. MIYA-BM [Concomitant]
     Active Substance: CLOSTRIDIUM BUTYRICUM SPORES STRAIN M-55
     Indication: DIARRHOEA
     Route: 048
     Dates: start: 20151229, end: 20160118
  120. PREDONINE [Concomitant]
     Active Substance: PREDNISOLONE
     Indication: LUPUS NEPHRITIS
     Route: 048
     Dates: start: 20141015, end: 20141119
  121. FUNGIZONE [Concomitant]
     Active Substance: AMPHOTERICIN B
     Indication: ORAL CANDIDIASIS
     Route: 048
     Dates: start: 20141203, end: 20150122
  122. TRANSAMIN [Concomitant]
     Active Substance: TRANEXAMIC ACID
     Indication: METRORRHAGIA
     Dosage: UNK UNK, UNKNOWN FREQ.
     Route: 065
  123. TACROLIMUS. [Suspect]
     Active Substance: TACROLIMUS
     Indication: LUPUS NEPHRITIS
     Route: 048
     Dates: start: 20070910
  124. DECADRON [Suspect]
     Active Substance: DEXAMETHASONE
     Indication: LYMPHADENOPATHY
     Route: 048
     Dates: start: 20150611, end: 20150701
  125. GASTER [Concomitant]
     Active Substance: FAMOTIDINE
     Indication: PROPHYLAXIS
     Route: 048
     Dates: end: 20071210
  126. MUCOSTA [Concomitant]
     Active Substance: REBAMIPIDE
     Indication: PLEURISY
     Dosage: 100 MG, AT PYREXIA
     Route: 048
     Dates: start: 20140204, end: 20140209
  127. TAKEPRON [Concomitant]
     Active Substance: LANSOPRAZOLE
     Route: 048
     Dates: start: 20141030
  128. ANTEBATE [Concomitant]
     Active Substance: BETAMETHASONE DIPROPIONATE
     Indication: URTICARIA
     Dosage: UNKNOWN DOSE, 2-3 TIMES DAILY
     Route: 061
     Dates: start: 20110321, end: 20110324
  129. OMEPRAL                            /00661201/ [Concomitant]
     Active Substance: OMEPRAZOLE
     Indication: PROPHYLAXIS AGAINST GASTROINTESTINAL ULCER
     Route: 048
     Dates: start: 20120824, end: 20130927
  130. CALONAL [Concomitant]
     Active Substance: ACETAMINOPHEN
     Indication: INFLUENZA
     Route: 048
     Dates: start: 20130214, end: 20130218
  131. CRAVIT [Concomitant]
     Active Substance: LEVOFLOXACIN
     Indication: PLEURISY
     Route: 048
     Dates: start: 20140310, end: 20140313
  132. CRAVIT [Concomitant]
     Active Substance: LEVOFLOXACIN
     Route: 048
     Dates: start: 20150604, end: 20150610
  133. CRAVIT [Concomitant]
     Active Substance: LEVOFLOXACIN
     Route: 048
     Dates: start: 20160104, end: 20160110
  134. CELECOX [Concomitant]
     Active Substance: CELECOXIB
     Indication: ARTHRALGIA
     Route: 048
     Dates: start: 20150312, end: 20160217

REACTIONS (34)
  - Lymphadenopathy [Recovered/Resolved]
  - Gastritis [Recovering/Resolving]
  - Arthralgia [Recovered/Resolved]
  - Diarrhoea [Recovering/Resolving]
  - Oral candidiasis [Recovered/Resolved]
  - Influenza [Recovering/Resolving]
  - Pharyngitis [Recovered/Resolved]
  - Systemic lupus erythematosus [Recovering/Resolving]
  - Metrorrhagia [Recovered/Resolved]
  - Rash [Recovering/Resolving]
  - Oral candidiasis [Recovered/Resolved]
  - Bacterial infection [Recovering/Resolving]
  - Bronchitis [Recovering/Resolving]
  - Urticaria [Recovering/Resolving]
  - Hyperuricaemia [Recovered/Resolved]
  - Lymphadenopathy [Recovering/Resolving]
  - Melanocytic naevus [Recovered/Resolved]
  - Lymphadenitis [Recovering/Resolving]
  - Pharyngitis [Recovering/Resolving]
  - Anaemia [Recovered/Resolved]
  - Diarrhoea [Recovered/Resolved]
  - Erythema [Recovered/Resolved]
  - Upper respiratory tract inflammation [Recovering/Resolving]
  - Pleurisy [Recovering/Resolving]
  - Oral candidiasis [Recovered/Resolved]
  - Nausea [Recovered/Resolved]
  - Pyrexia [Recovered/Resolved]
  - Skin mass [Recovering/Resolving]
  - Pyrexia [Recovered/Resolved]
  - Neck pain [Recovering/Resolving]
  - Nasopharyngitis [Recovering/Resolving]
  - Nausea [Recovering/Resolving]
  - Faeces soft [Recovering/Resolving]
  - Myalgia [Recovered/Resolved]

NARRATIVE: CASE EVENT DATE: 20071112
